FAERS Safety Report 15271316 (Version 1)
Quarter: 2018Q3

REPORT INFORMATION
  Report Type: Spontaneous
  Country: US (occurrence: US)
  Receive Date: 20180727
  Receipt Date: 20180727
  Transmission Date: 20181010
  Serious: Yes (Hospitalization)
  Sender: FDA-Public Use
  Company Number: None

PATIENT
  Age: 13 Year
  Sex: Male
  Weight: 46 kg

DRUGS (1)
  1. TISAGENLECLEUCEL. [Suspect]
     Active Substance: TISAGENLECLEUCEL
     Indication: ACUTE LYMPHOCYTIC LEUKAEMIA RECURRENT
     Route: 042
     Dates: start: 20180606, end: 20180606

REACTIONS (8)
  - Facial paralysis [None]
  - Pyrexia [None]
  - Haemodynamic instability [None]
  - Oxygen saturation decreased [None]
  - Musculoskeletal pain [None]
  - Hypotension [None]
  - Disorientation [None]
  - Neck pain [None]

NARRATIVE: CASE EVENT DATE: 20180611
